FAERS Safety Report 19114629 (Version 1)
Quarter: 2021Q2

REPORT INFORMATION
  Report Type: Spontaneous
  Country: US (occurrence: US)
  Receive Date: 20210408
  Receipt Date: 20210408
  Transmission Date: 20210717
  Serious: No
  Sender: FDA-Public Use
  Company Number: US-PERRIGO-20US017223

PATIENT
  Age: 81 Year
  Sex: Male
  Weight: 47.62 kg

DRUGS (2)
  1. PSEUDOEPHEDRINE HYDROCHLORIDE. [Suspect]
     Active Substance: PSEUDOEPHEDRINE HYDROCHLORIDE
     Indication: PARANASAL SINUS DISCOMFORT
     Dosage: 120 MG, EVERY 12 HOURS
     Route: 048
     Dates: start: 20201124, end: 20201128
  2. PSEUDOEPHEDRINE HYDROCHLORIDE. [Suspect]
     Active Substance: PSEUDOEPHEDRINE HYDROCHLORIDE
     Indication: SINUS CONGESTION

REACTIONS (5)
  - Drug ineffective [Unknown]
  - Feeling abnormal [Recovered/Resolved]
  - Condition aggravated [Not Recovered/Not Resolved]
  - Somnolence [Recovered/Resolved]
  - Depressed mood [Recovered/Resolved]

NARRATIVE: CASE EVENT DATE: 20201124
